FAERS Safety Report 4503500-9 (Version None)
Quarter: 2005Q1

REPORT INFORMATION
  Report Type: 
  Country: None (occurrence: None)
  Receive Date: 20041115
  Receipt Date: 20041028
  Transmission Date: 20050727
  Serious: No
  Sender: FDA-Public Use
  Company Number: 2004SE05996

PATIENT
  Age: 90 Year
  Sex: Female

DRUGS (4)
  1. BLOPRESS [Suspect]
     Indication: HYPERTENSION
     Dosage: 8 MG QD PO
     Route: 048
  2. TICLOPIDINE HCL [Concomitant]
  3. NORVASC [Concomitant]
  4. BROTIZOLAM [Concomitant]

REACTIONS (1)
  - HALLUCINATION, AUDITORY [None]
